FAERS Safety Report 16792057 (Version 2)
Quarter: 2020Q1

REPORT INFORMATION
  Report Type: Spontaneous
  Country: JP (occurrence: JP)
  Receive Date: 20190910
  Receipt Date: 20200117
  Transmission Date: 20200409
  Serious: Yes (Other)
  Sender: FDA-Public Use
  Company Number: JP-ELI_LILLY_AND_COMPANY-JP201909002503

PATIENT
  Age: 78 Year
  Sex: Female

DRUGS (3)
  1. ERBITUX [Suspect]
     Active Substance: CETUXIMAB
     Indication: COLON CANCER
     Dosage: 510 MG, UNKNOWN
     Route: 041
     Dates: start: 20190628, end: 20190628
  2. ERBITUX [Suspect]
     Active Substance: CETUXIMAB
     Dosage: 320 MG, UNKNOWN
     Route: 041
     Dates: end: 20191223
  3. IRINOTECAN HYDROCHLORIDE TRIHYDRATE [IRINOTEC [Suspect]
     Active Substance: IRINOTECAN HYDROCHLORIDE
     Indication: COLON CANCER
     Dosage: 130 MG, UNKNOWN
     Route: 041
     Dates: start: 20190628, end: 20190809

REACTIONS (1)
  - Bone marrow failure [Recovered/Resolved]

NARRATIVE: CASE EVENT DATE: 20190712
